FAERS Safety Report 16777334 (Version 4)
Quarter: 2019Q4

REPORT INFORMATION
  Report Type: Spontaneous
  Country: US (occurrence: US)
  Receive Date: 20190905
  Receipt Date: 20191015
  Transmission Date: 20200122
  Serious: No
  Sender: FDA-Public Use
  Company Number: US-PFIZER INC-2019375430

PATIENT
  Age: 75 Year
  Sex: Female
  Weight: 68 kg

DRUGS (3)
  1. LYRICA [Suspect]
     Active Substance: PREGABALIN
     Indication: PAIN
     Dosage: 25 MG, TWICE A DAY (ONE IN THE MORNING/ ONE IN THE EVENING)
     Route: 048
  2. GABAPENTIN. [Concomitant]
     Active Substance: GABAPENTIN
     Indication: PAIN
     Dosage: 500 MG, DAILY (ONE 300 MG CAPSULE IN THE MORNING, THEN TWO 100 MG CAPSULES IN THE EVENING)
     Route: 048
  3. LYRICA [Suspect]
     Active Substance: PREGABALIN
     Indication: ARTHRALGIA

REACTIONS (1)
  - Gait inability [Unknown]
